FAERS Safety Report 21023091 (Version 1)
Quarter: 2022Q2

REPORT INFORMATION
  Report Type: Spontaneous
  Country: US (occurrence: None)
  Receive Date: 20220629
  Receipt Date: 20220629
  Transmission Date: 20220721
  Serious: Yes (Life-Threatening, Hospitalization)
  Sender: FDA-Public Use
  Company Number: None

PATIENT
  Age: 88 Year
  Sex: Male
  Weight: 85.28 kg

DRUGS (1)
  1. APIXABAN [Suspect]
     Active Substance: APIXABAN
     Indication: Atrial fibrillation
     Dosage: 1 TAB BID PO?
     Route: 048
     Dates: start: 20210530, end: 20211231

REACTIONS (2)
  - Gastrointestinal haemorrhage [None]
  - Acute myocardial infarction [None]

NARRATIVE: CASE EVENT DATE: 20211231
